FAERS Safety Report 5616654-8 (Version None)
Quarter: 2008Q1

REPORT INFORMATION
  Report Type: 
  Country: None (occurrence: None)
  Receive Date: 20080206
  Receipt Date: 20080206
  Transmission Date: 20080703
  Serious: Yes (Other)
  Sender: FDA-Public Use
  Company Number: None

PATIENT
  Age: 63 Year
  Sex: Male

DRUGS (17)
  1. VINCRISTINE [Suspect]
     Indication: HODGKIN'S DISEASE
     Dosage: 21 MG  Q 21 DAYS  IV
     Route: 042
     Dates: start: 20070925, end: 20071030
  2. VALTREX [Concomitant]
  3. LEVOTHYROXINE SODIUM [Concomitant]
  4. LAMICTAL [Concomitant]
  5. HYDROCORTISONE [Concomitant]
  6. ATENOLOL [Concomitant]
  7. CRESTOR [Concomitant]
  8. FUROSEMIDE [Concomitant]
  9. POTASSIUM CHLORIDE [Concomitant]
  10. NEXIUM [Concomitant]
  11. ACETAMINOPHEN AND HYDROCODONE BITARTRATE [Concomitant]
  12. FENTANYL [Concomitant]
  13. DOCUSATE CALCIUM [Concomitant]
  14. ZOFRAN [Concomitant]
  15. ASPIRIN [Concomitant]
  16. WARFARIN SODIUM [Concomitant]
  17. FENTANYL [Concomitant]

REACTIONS (2)
  - DEAFNESS NEUROSENSORY [None]
  - NEUROTOXICITY [None]
